FAERS Safety Report 8225733-0 (Version None)
Quarter: 2012Q1

REPORT INFORMATION
  Report Type: 
  Country: None (occurrence: None)
  Receive Date: 20120321
  Receipt Date: 20120313
  Transmission Date: 20120608
  Serious: Yes (Other)
  Sender: FDA-Public Use
  Company Number: IT-PFIZER INC-2012072434

PATIENT
  Age: 3 Year
  Sex: Male

DRUGS (1)
  1. IBUPROFEN [Suspect]
     Indication: PRODUCT USED FOR UNKNOWN INDICATION
     Dosage: UNK
     Route: 048

REACTIONS (4)
  - OBSTRUCTION GASTRIC [None]
  - PREPYLORIC STENOSIS [None]
  - GASTRIC ULCER [None]
  - GASTRITIS HAEMORRHAGIC [None]
